FAERS Safety Report 11240369 (Version 1)
Quarter: 2015Q3

REPORT INFORMATION
  Report Type: Spontaneous
  Country: US (occurrence: None)
  Receive Date: 20150701
  Receipt Date: 20150701
  Transmission Date: 20151125
  Serious: Yes (Hospitalization)
  Sender: FDA-Public Use
  Company Number: None

PATIENT
  Age: 35 Year
  Sex: Female
  Weight: 108.86 kg

DRUGS (2)
  1. RANITITNE [Concomitant]
  2. VANCOMYCIN [Suspect]
     Active Substance: VANCOMYCIN
     Indication: POST PROCEDURAL INFECTION
     Route: 042
     Dates: start: 20150615, end: 20150615

REACTIONS (8)
  - Heart rate increased [None]
  - Throat tightness [None]
  - Dyspnoea [None]
  - Blood pressure diastolic increased [None]
  - Nausea [None]
  - Pruritus [None]
  - Dizziness [None]
  - Chest discomfort [None]

NARRATIVE: CASE EVENT DATE: 20150615
